FAERS Safety Report 16291254 (Version 6)
Quarter: 2020Q2

REPORT INFORMATION
  Report Type: Spontaneous
  Country: US (occurrence: US)
  Receive Date: 20190509
  Receipt Date: 20200611
  Transmission Date: 20200713
  Serious: No
  Sender: FDA-Public Use
  Company Number: US-PFIZER INC-2019192515

PATIENT
  Age: 73 Year
  Sex: Female
  Weight: 67.59 kg

DRUGS (9)
  1. ZOLOFT [Concomitant]
     Active Substance: SERTRALINE HYDROCHLORIDE
     Indication: STRESS
     Dosage: 100 MG, DAILY
     Route: 048
  2. FLECTOR [Suspect]
     Active Substance: DICLOFENAC EPOLAMINE
     Indication: ARTHRALGIA
     Dosage: 1 DF, AS NEEDED, (ONE PATCH EVERY 12 HOURS, AS NEEDED)
  3. FLECTOR [Suspect]
     Active Substance: DICLOFENAC EPOLAMINE
     Dosage: UNK, AS NEEDED, (1.3%; APPLY TO SKIN AS NEEDED 4-5 TIMES A WEEK ON HER ANKLE AND 3 TIMES A WEEK TO )
     Route: 061
  4. FLECTOR [Suspect]
     Active Substance: DICLOFENAC EPOLAMINE
     Indication: PAIN
     Dosage: 1 DF, AS NEEDED, ONE PATCH EVERY 12 HOURS, AS NEEDED
     Dates: start: 2019
  5. HYDROCODONE [Concomitant]
     Active Substance: HYDROCODONE
     Dosage: 325 MG
  6. FLECTOR [Suspect]
     Active Substance: DICLOFENAC EPOLAMINE
     Dosage: UNK, AS NEEDED, 1.3% 1 PATCH AS NEEDED TO KNEES AND ANKLE
     Route: 061
  7. METOPROLOL SUCCINATE. [Concomitant]
     Active Substance: METOPROLOL SUCCINATE
     Dosage: 12.5 MG, DAILY(1/2 TABLET DAILY)
     Route: 048
  8. KLONOPIN [Concomitant]
     Active Substance: CLONAZEPAM
     Indication: ANXIETY
     Dosage: 1 DF, AS NEEDED
     Route: 048
  9. METOPROLOL SUCCINATE. [Concomitant]
     Active Substance: METOPROLOL SUCCINATE
     Indication: SUPRAVENTRICULAR TACHYCARDIA
     Dosage: 25 MG, UNK (1 WHOLE TABLET)

REACTIONS (5)
  - Decreased activity [Unknown]
  - Intentional product misuse [Unknown]
  - Swelling [Unknown]
  - Weight increased [Unknown]
  - Joint injury [Recovered/Resolved]

NARRATIVE: CASE EVENT DATE: 202001
